FAERS Safety Report 7487221-9 (Version None)
Quarter: 2011Q2

REPORT INFORMATION
  Report Type: 
  Country: None (occurrence: None)
  Receive Date: 20110518
  Receipt Date: 20110414
  Transmission Date: 20111010
  Serious: Yes (Other)
  Sender: FDA-Public Use
  Company Number: US-BAYER-2011-000427

PATIENT
  Age: 29 Year
  Sex: Female
  Weight: 111.57 kg

DRUGS (9)
  1. YASMIN [Suspect]
     Indication: ACNE
     Dosage: UNK
     Route: 048
     Dates: start: 20060101, end: 20090101
  2. DROSPIRENONE AND ETHINYL ESTRADIOL [Suspect]
     Indication: ACNE
     Dosage: UNK
     Route: 048
     Dates: start: 20060101, end: 20090101
  3. SINGULAIR [Concomitant]
     Dosage: 10 MG, QD
  4. FLUTICASONE PROPIONATE [Concomitant]
     Dosage: UNK UNK, QD
     Route: 045
  5. NAPROXEN [Concomitant]
     Dosage: 375 MG, UNK
     Route: 048
     Dates: start: 20080608
  6. CIPROFLOXACIN HCL [Concomitant]
     Dosage: UNK UNK, BID
     Route: 048
  7. VIGAMOX [Concomitant]
     Dosage: UNK UNK, TID
     Route: 061
     Dates: start: 20080715
  8. FLUCONAZOLE [Concomitant]
     Dosage: UNK MG, UNK
     Route: 048
  9. CLOTRIMAZOLE [Concomitant]
     Dosage: UNK
     Route: 061
     Dates: start: 20080715

REACTIONS (5)
  - PAIN [None]
  - GALLBLADDER DISORDER [None]
  - CHOLECYSTITIS ACUTE [None]
  - INJURY [None]
  - CHOLELITHIASIS [None]
